FAERS Safety Report 20565024 (Version 2)
Quarter: 2022Q1

REPORT INFORMATION
  Report Type: Report from Study
  Country: DE (occurrence: None)
  Receive Date: 20220308
  Receipt Date: 20220325
  Transmission Date: 20220423
  Serious: No
  Sender: FDA-Public Use
  Company Number: DE-Spark Therapeutics, Inc.-DE-SPK-20-00091

PATIENT
  Age: 28 Year
  Sex: Male
  Weight: 95.5 kg

DRUGS (4)
  1. VORETIGENE NEPARVOVEC [Suspect]
     Active Substance: VORETIGENE NEPARVOVEC
     Indication: Retinal dystrophy
     Dates: start: 20200217, end: 20200217
  2. VORETIGENE NEPARVOVEC [Suspect]
     Active Substance: VORETIGENE NEPARVOVEC
     Indication: RPE65 gene mutation
     Dates: start: 20201123, end: 20201123
  3. VORETIGENE NEPARVOVEC [Suspect]
     Active Substance: VORETIGENE NEPARVOVEC
     Indication: Retinal dystrophy
     Dates: start: 20200217, end: 20200217
  4. VORETIGENE NEPARVOVEC [Suspect]
     Active Substance: VORETIGENE NEPARVOVEC
     Indication: RPE65 gene mutation
     Dates: start: 20201123, end: 20201123

REACTIONS (4)
  - Retinal degeneration [Not Recovered/Not Resolved]
  - Dyschromatopsia [Recovered/Resolved]
  - Metamorphopsia [Recovering/Resolving]
  - Injection site atrophy [Not Recovered/Not Resolved]

NARRATIVE: CASE EVENT DATE: 20200217
